FAERS Safety Report 18726030 (Version 1)
Quarter: 2021Q1

REPORT INFORMATION
  Report Type: Spontaneous
  Country: FR (occurrence: FR)
  Receive Date: 20210111
  Receipt Date: 20210111
  Transmission Date: 20210419
  Serious: Yes (Other)
  Sender: FDA-Public Use
  Company Number: FR-009507513-2101FRA003754

PATIENT
  Age: 46 Year
  Sex: Female

DRUGS (2)
  1. DESLORATADINE. [Suspect]
     Active Substance: DESLORATADINE
     Indication: TOXICITY TO VARIOUS AGENTS
     Dosage: DOSE: 30 DOSAGE FORM, ONCE
     Route: 048
     Dates: start: 20201220, end: 20201220
  2. BROMAZEPAM [Suspect]
     Active Substance: BROMAZEPAM
     Indication: TOXICITY TO VARIOUS AGENTS
     Dosage: 5 DOSAGE FORM, ONCE
     Route: 048
     Dates: start: 20201220, end: 20201220

REACTIONS (2)
  - Somnolence [Recovered/Resolved]
  - Toxicity to various agents [Recovered/Resolved]

NARRATIVE: CASE EVENT DATE: 20201220
